FAERS Safety Report 24065795 (Version 1)
Quarter: 2024Q3

REPORT INFORMATION
  Report Type: Spontaneous
  Country: US (occurrence: US)
  Receive Date: 20240709
  Receipt Date: 20240709
  Transmission Date: 20241017
  Serious: Yes (Hospitalization, Other)
  Sender: AMGEN
  Company Number: US-AMGEN-USASP2024132674

PATIENT
  Age: 52 Year
  Sex: Female

DRUGS (4)
  1. PREDNISONE [Suspect]
     Active Substance: PREDNISONE
     Indication: Systemic lupus erythematosus
     Dosage: LOW DOSE
     Route: 065
  2. PREDNISONE [Suspect]
     Active Substance: PREDNISONE
     Dosage: 60 MILLIGRAM
     Route: 065
  3. HYDROXYCHLOROQUINE SULFATE [Concomitant]
     Active Substance: HYDROXYCHLOROQUINE SULFATE
     Indication: Systemic lupus erythematosus
     Dosage: UNK
  4. METHOTREXATE SODIUM [Concomitant]
     Active Substance: METHOTREXATE SODIUM
     Indication: Systemic lupus erythematosus
     Dosage: UNK

REACTIONS (13)
  - Migraine [Unknown]
  - Systemic lupus erythematosus [Unknown]
  - Pancytopenia [Unknown]
  - Protein total increased [Unknown]
  - Blood immunoglobulin G increased [Unknown]
  - DNA antibody positive [Unknown]
  - Complement factor C3 increased [Unknown]
  - Complement factor C4 increased [Unknown]
  - Hippocampal sclerosis [Unknown]
  - Epilepsy [Unknown]
  - Encephalitis [Unknown]
  - Headache [Recovered/Resolved]
  - Fear [Unknown]
